FAERS Safety Report 21285902 (Version 1)
Quarter: 2022Q3

REPORT INFORMATION
  Report Type: Spontaneous
  Country: DE (occurrence: DE)
  Receive Date: 20220902
  Receipt Date: 20220902
  Transmission Date: 20221027
  Serious: Yes (Death, Other)
  Sender: FDA-Public Use
  Company Number: DE-STRIDES ARCOLAB LIMITED-2022SP010993

PATIENT
  Age: 43 Year
  Sex: Male

DRUGS (3)
  1. ALBENDAZOLE [Interacting]
     Active Substance: ALBENDAZOLE
     Indication: Hepatic echinococciasis
     Dosage: UNK
     Route: 065
  2. NITAZOXANIDE [Interacting]
     Active Substance: NITAZOXANIDE
     Indication: Hepatic echinococciasis
     Dosage: 500 MILLIGRAM, BID (2 X 500 MG/DAY)
     Route: 065
  3. MEBENDAZOLE [Suspect]
     Active Substance: MEBENDAZOLE
     Indication: Hepatic echinococciasis
     Dosage: UNK
     Route: 065

REACTIONS (4)
  - Sepsis [Fatal]
  - Drug interaction [Unknown]
  - Drug level increased [Unknown]
  - Treatment failure [Unknown]
